FAERS Safety Report 8607894 (Version 2)
Quarter: 2013Q3

REPORT INFORMATION
  Report Type: Spontaneous
  Country: US (occurrence: US)
  Receive Date: 20120611
  Receipt Date: 20130725
  Transmission Date: 20140515
  Serious: Yes (Hospitalization)
  Sender: FDA-Public Use
  Company Number: US-ASTRAZENECA-2012SE35170

PATIENT
  Sex: Female

DRUGS (8)
  1. NEXIUM [Suspect]
     Indication: GASTROOESOPHAGEAL REFLUX DISEASE
     Route: 048
     Dates: start: 20061115, end: 20110525
  2. NEXIUM [Suspect]
     Indication: GASTROOESOPHAGEAL REFLUX DISEASE
     Route: 048
     Dates: start: 20051024
  3. PREVACID [Concomitant]
     Dates: start: 20110801
  4. PEPCID [Concomitant]
     Indication: GASTROOESOPHAGEAL REFLUX DISEASE
     Dates: start: 20110926
  5. ZOLOFT [Concomitant]
     Route: 048
     Dates: start: 20050606
  6. ZOCOR [Concomitant]
     Route: 048
     Dates: start: 20051024
  7. GABAPENTIN [Concomitant]
     Route: 048
     Dates: start: 20051024
  8. METOPROLOL TARTRATE [Concomitant]
     Route: 048
     Dates: start: 20051024

REACTIONS (15)
  - Pain [Unknown]
  - Intervertebral disc protrusion [Unknown]
  - Carpal tunnel syndrome [Unknown]
  - Osteoporosis [Unknown]
  - Multiple fractures [Unknown]
  - Bone disorder [Unknown]
  - Musculoskeletal pain [Unknown]
  - Viral infection [Unknown]
  - Influenza [Unknown]
  - Bronchitis [Unknown]
  - Anxiety [Unknown]
  - Panic attack [Unknown]
  - Arthritis [Unknown]
  - Type 2 diabetes mellitus [Unknown]
  - Depression [Unknown]
